FAERS Safety Report 9390720 (Version 7)
Quarter: 2014Q2

REPORT INFORMATION
  Report Type: Report from Study
  Country: CA (occurrence: CA)
  Receive Date: 20130709
  Receipt Date: 20140521
  Transmission Date: 20141212
  Serious: Yes (Death, Life-Threatening, Hospitalization)
  Sender: FDA-Public Use
  Company Number: CA-CELGENEUS-028-21880-13070386

PATIENT
  Age: 74 Year
  Sex: Female
  Weight: 52.4 kg

DRUGS (25)
  1. REVLIMID [Suspect]
     Indication: PLASMA CELL MYELOMA
     Route: 048
     Dates: start: 20130417
  2. ELOTUZUMAB [Suspect]
     Indication: PLASMA CELL MYELOMA
     Route: 041
     Dates: start: 20130417
  3. DEXAMETHASONE [Suspect]
     Indication: PLASMA CELL MYELOMA
     Route: 048
     Dates: start: 20130417
  4. DEXAMETHASONE [Suspect]
     Route: 041
     Dates: start: 20130417
  5. ASA [Concomitant]
     Indication: PRODUCT USED FOR UNKNOWN INDICATION
     Route: 065
     Dates: start: 1993
  6. HYDROMORPHONE [Concomitant]
     Indication: PRODUCT USED FOR UNKNOWN INDICATION
     Route: 065
     Dates: start: 201301
  7. HYDROMORPHONE CONTIN [Concomitant]
     Indication: PRODUCT USED FOR UNKNOWN INDICATION
     Route: 065
     Dates: start: 201302
  8. HYDROMORPHONE CONTIN [Concomitant]
     Route: 065
     Dates: start: 20130626
  9. PEG 3350 [Concomitant]
     Indication: PRODUCT USED FOR UNKNOWN INDICATION
     Route: 065
     Dates: start: 201301
  10. NORMAL SALINE [Concomitant]
     Indication: ADVERSE EVENT
     Route: 041
     Dates: start: 20130424, end: 20130424
  11. NORMAL SALINE [Concomitant]
     Route: 041
     Dates: start: 20130612, end: 20130612
  12. NORMAL SALINE [Concomitant]
     Route: 041
     Dates: start: 20130626
  13. MAXERAN [Concomitant]
     Indication: ADVERSE EVENT
     Route: 065
     Dates: start: 20130424
  14. ZOMETA [Concomitant]
     Indication: PRODUCT USED FOR UNKNOWN INDICATION
     Route: 065
     Dates: start: 201304
  15. NYSTATIN MOUTHWASH [Concomitant]
     Indication: ADVERSE EVENT
     Route: 048
     Dates: start: 20130424
  16. RED BLOOD CELLS [Concomitant]
     Indication: PRODUCT USED FOR UNKNOWN INDICATION
     Dosage: 2 UNITS
     Route: 041
  17. MORPHINE [Concomitant]
     Indication: ADVERSE EVENT
     Route: 065
     Dates: start: 20130625
  18. GRAVOL [Concomitant]
     Indication: ADVERSE EVENT
     Route: 065
     Dates: start: 20130627, end: 20130726
  19. LASIX [Concomitant]
     Indication: ADVERSE EVENT
     Route: 065
     Dates: start: 20130626
  20. HEPARIN [Concomitant]
     Indication: PRODUCT USED FOR UNKNOWN INDICATION
     Route: 065
     Dates: start: 20130625, end: 20130716
  21. TYLENOL [Concomitant]
     Indication: ADVERSE EVENT
     Route: 065
     Dates: start: 20130627
  22. THIAMINE [Concomitant]
     Indication: PRODUCT USED FOR UNKNOWN INDICATION
     Route: 065
     Dates: start: 20130627
  23. PIPTAZ [Concomitant]
     Indication: ADVERSE EVENT
     Route: 065
     Dates: start: 20130628, end: 20130702
  24. REPLAVITE [Concomitant]
     Indication: ADVERSE EVENT
     Route: 065
     Dates: start: 20130629
  25. METOPROLOL [Concomitant]
     Indication: PRODUCT USED FOR UNKNOWN INDICATION
     Route: 065
     Dates: start: 20130628

REACTIONS (3)
  - Plasma cell myeloma [Fatal]
  - Sepsis [Fatal]
  - Renal failure acute [Recovered/Resolved with Sequelae]
